FAERS Safety Report 26119461 (Version 2)
Quarter: 2025Q4

REPORT INFORMATION
  Report Type: Spontaneous
  Country: JP (occurrence: JP)
  Receive Date: 20251204
  Receipt Date: 20251216
  Transmission Date: 20260118
  Serious: Yes (Other)
  Sender: ACCORD
  Company Number: JP-MLMSERVICE-20251117-PI711119-00082-3

PATIENT
  Age: 7 Decade
  Sex: Female
  Weight: 43 kg

DRUGS (8)
  1. CARBOPLATIN [Suspect]
     Active Substance: CARBOPLATIN
     Indication: Sarcomatoid carcinoma of the lung
     Dosage: 80% REDUCTION, 530 MG (AUC 6)
     Dates: start: 2021, end: 2021
  2. PACLITAXEL [Suspect]
     Active Substance: PACLITAXEL
     Indication: Sarcomatoid carcinoma of the lung
     Dosage: 80% REDUCTION, 289 MG (200 MG/M2)
     Dates: start: 2021, end: 2021
  3. IPILIMUMAB [Suspect]
     Active Substance: IPILIMUMAB
     Indication: Sarcomatoid carcinoma of the lung
     Dosage: 43 MG (1 MG/KG)
     Dates: start: 202101, end: 202103
  4. NIVOLUMAB [Suspect]
     Active Substance: NIVOLUMAB
     Indication: Sarcomatoid carcinoma of the lung
     Dates: start: 202101, end: 202103
  5. IPILIMUMAB [Suspect]
     Active Substance: IPILIMUMAB
     Indication: Metastases to central nervous system
     Dosage: 43 MG (1 MG/KG)
     Dates: start: 202101, end: 202103
  6. NIVOLUMAB [Suspect]
     Active Substance: NIVOLUMAB
     Indication: Metastases to central nervous system
     Dates: start: 202101, end: 202103
  7. PACLITAXEL [Suspect]
     Active Substance: PACLITAXEL
     Indication: Metastases to central nervous system
     Dosage: 80% REDUCTION, 289 MG (200 MG/M2)
     Dates: start: 2021, end: 2021
  8. CARBOPLATIN [Suspect]
     Active Substance: CARBOPLATIN
     Indication: Metastases to central nervous system
     Dosage: 80% REDUCTION, 530 MG (AUC 6)
     Dates: start: 2021, end: 2021

REACTIONS (1)
  - Aspartate aminotransferase increased [Recovered/Resolved]

NARRATIVE: CASE EVENT DATE: 20210301
